FAERS Safety Report 17533101 (Version 1)
Quarter: 2020Q1

REPORT INFORMATION
  Report Type: Spontaneous
  Country: US (occurrence: US)
  Receive Date: 20200312
  Receipt Date: 20200312
  Transmission Date: 20200409
  Serious: Yes (Other)
  Sender: FDA-Public Use
  Company Number: US-SAOL THERAPEUTICS-2020SAO00064

PATIENT
  Age: 27 Year
  Sex: Male

DRUGS (1)
  1. LIORESAL [Suspect]
     Active Substance: BACLOFEN
     Dosage: 589.7 ?G, \DAY
     Route: 037

REACTIONS (3)
  - Muscle tightness [Unknown]
  - Urinary tract infection [Unknown]
  - Device failure [Unknown]

NARRATIVE: CASE EVENT DATE: 20200221
